FAERS Safety Report 11677062 (Version 1)
Quarter: 2015Q4

REPORT INFORMATION
  Report Type: Spontaneous
  Country: US (occurrence: US)
  Receive Date: 20151027
  Receipt Date: 20151027
  Transmission Date: 20160304
  Serious: No
  Sender: FDA-Public Use
  Company Number: US-ELI_LILLY_AND_COMPANY-US201008007191

PATIENT
  Age: 60 Year
  Sex: Female

DRUGS (6)
  1. CALCIUM [Concomitant]
     Active Substance: CALCIUM
  2. VITAMIN D [Concomitant]
     Active Substance: CHOLECALCIFEROL
  3. FORTEO [Suspect]
     Active Substance: TERIPARATIDE
     Dosage: 20 UG, DAILY (1/D)
     Dates: end: 201009
  4. ASPIRIN. [Concomitant]
     Active Substance: ASPIRIN
  5. FORTEO [Suspect]
     Active Substance: TERIPARATIDE
     Indication: OSTEOPOROSIS
     Dosage: 20 UG, DAILY (1/D)
     Dates: start: 200907
  6. MULTIVITAMIN [Concomitant]
     Active Substance: VITAMINS
     Indication: VISUAL IMPAIRMENT

REACTIONS (3)
  - Pain in jaw [Recovering/Resolving]
  - Muscle tightness [Recovering/Resolving]
  - Dental implantation [Unknown]

NARRATIVE: CASE EVENT DATE: 201003
